FAERS Safety Report 8157192-0 (Version None)
Quarter: 2012Q1

REPORT INFORMATION
  Report Type: 
  Country: None (occurrence: None)
  Receive Date: 20120222
  Receipt Date: 20120213
  Transmission Date: 20120608
  Serious: Yes (Hospitalization)
  Sender: FDA-Public Use
  Company Number: DE-ROCHE-1040239

PATIENT
  Sex: Female
  Weight: 54 kg

DRUGS (10)
  1. PACLITAXEL [Suspect]
     Indication: BREAST CANCER METASTATIC
     Route: 042
  2. DEXAMETHASONE [Suspect]
     Indication: PROPHYLAXIS
  3. ENALAPRIL MALEATE [Suspect]
     Indication: HYPERTENSION
     Route: 048
     Dates: start: 20120101
  4. GRANISETRON HYDROCHLORIDE [Suspect]
     Indication: PROPHYLAXIS OF NAUSEA AND VOMITING
     Route: 042
  5. CARBOPLATIN [Suspect]
     Indication: BREAST CANCER METASTATIC
     Dosage: AUC 5
     Route: 042
  6. RANITIDINE [Suspect]
     Indication: PROPHYLAXIS
     Route: 042
  7. METOPROLOL NOS [Suspect]
     Indication: HYPERTENSION
     Route: 048
     Dates: start: 20120101
  8. HYDROCHLOROTHIAZIDE [Suspect]
     Indication: HYPERTENSION
     Route: 048
     Dates: start: 20120101
  9. AVASTIN [Suspect]
     Indication: BREAST CANCER METASTATIC
     Route: 042
  10. CLEMASTINE [Suspect]
     Indication: PROPHYLAXIS
     Route: 042

REACTIONS (1)
  - LARGE INTESTINE PERFORATION [None]
